FAERS Safety Report 9800375 (Version 1)
Quarter: 2014Q1

REPORT INFORMATION
  Report Type: Spontaneous
  Country: FI (occurrence: FI)
  Receive Date: 20140106
  Receipt Date: 20140106
  Transmission Date: 20141002
  Serious: Yes (Death, Hospitalization)
  Sender: FDA-Public Use
  Company Number: FI-AMGEN-FINSP2013091358

PATIENT
  Age: 70 Year
  Sex: Male

DRUGS (8)
  1. XGEVA [Suspect]
     Indication: METASTASES TO BONE
     Dosage: 120 MG, UNK
     Route: 058
     Dates: start: 20120824, end: 20120824
  2. OXYCONTIN [Concomitant]
     Dosage: 60 MG, UNK
     Route: 048
  3. BISOPROLOL [Concomitant]
     Dosage: 1.25 MG, UNK
     Route: 048
  4. PREDNISOLON                        /00016201/ [Concomitant]
     Dosage: 20 MG, UNK
     Route: 048
  5. SOMAC [Concomitant]
     Dosage: 40 MG, UNK
     Route: 048
  6. TAMSULOSIN [Concomitant]
     Dosage: 0.4 MG, UNK
     Route: 048
  7. ATORVASTATIN [Concomitant]
     Dosage: 20 MG, UNK
     Route: 048
  8. KALCIPOS D3 [Concomitant]
     Dosage: 2 DF, UNK
     Route: 048

REACTIONS (5)
  - Pericardial neoplasm [Fatal]
  - Adenocarcinoma [Fatal]
  - Metastases to soft tissue [Fatal]
  - Metastases to bone [Fatal]
  - Hypocalcaemia [Recovering/Resolving]
